FAERS Safety Report 6849763-6 (Version None)
Quarter: 2010Q3

REPORT INFORMATION
  Report Type: 
  Country: None (occurrence: None)
  Receive Date: 20100716
  Receipt Date: 20071229
  Transmission Date: 20110219
  Serious: No
  Sender: FDA-Public Use
  Company Number: US-PFIZER INC-2007083295

PATIENT
  Sex: Female
  Weight: 42.18 kg

DRUGS (11)
  1. CHANTIX [Suspect]
     Indication: SMOKING CESSATION THERAPY
     Route: 048
     Dates: start: 20071001
  2. ZOLPIDEM TARTRATE [Concomitant]
  3. TRAZODONE HYDROCHLORIDE [Concomitant]
  4. VALSARTAN [Concomitant]
  5. CARDIZEM CD [Concomitant]
  6. PLAVIX [Concomitant]
  7. NEURONTIN [Concomitant]
  8. ALBUTEROL [Concomitant]
  9. LIDOCAINE [Concomitant]
  10. ALL OTHER THERAPEUTIC PRODUCTS [Concomitant]
  11. VICODIN [Concomitant]

REACTIONS (1)
  - INSOMNIA [None]
